FAERS Safety Report 8575358-2 (Version None)
Quarter: 2012Q3

REPORT INFORMATION
  Report Type: 
  Country: None (occurrence: None)
  Receive Date: 20120807
  Receipt Date: 20120803
  Transmission Date: 20120928
  Serious: No
  Sender: FDA-Public Use
  Company Number: US-PFIZER INC-2012189356

PATIENT
  Age: 52 Year
  Sex: Female
  Weight: 65.3 kg

DRUGS (2)
  1. ESTRING [Suspect]
     Indication: MENOPAUSAL SYMPTOMS
     Dosage: 2 MG, EVERY 3 MONTHS
     Route: 067
     Dates: start: 20120706, end: 20120729
  2. SYNTHROID [Concomitant]
     Indication: THYROID DISORDER
     Dosage: 75 UG, 1X/DAY

REACTIONS (6)
  - HEADACHE [None]
  - DYSPEPSIA [None]
  - INFLUENZA LIKE ILLNESS [None]
  - MALAISE [None]
  - ALOPECIA [None]
  - BACK PAIN [None]
